FAERS Safety Report 14505100 (Version 3)
Quarter: 2025Q2

REPORT INFORMATION
  Report Type: Report from Study
  Country: FR (occurrence: FR)
  Receive Date: 20180208
  Receipt Date: 20250422
  Transmission Date: 20250717
  Serious: Yes (Hospitalization, Other)
  Sender: PFIZER
  Company Number: FR-009507513-1709FRA007481

PATIENT
  Age: 58 Year
  Sex: Female
  Weight: 104 kg

DRUGS (19)
  1. CYTARABINE [Suspect]
     Active Substance: CYTARABINE
  2. NOXAFIL [Suspect]
     Active Substance: POSACONAZOLE
     Indication: Antifungal prophylaxis
     Dosage: 300 MG, 1X/DAY
     Route: 048
     Dates: start: 20170809, end: 20170904
  3. POLARAMINE [Concomitant]
     Active Substance: DEXCHLORPHENIRAMINE MALEATE
     Indication: Rash
     Dates: end: 20170904
  4. POLARAMINE [Concomitant]
     Active Substance: DEXCHLORPHENIRAMINE MALEATE
     Dates: end: 20170907
  5. OXYCODONE HYDROCHLORIDE [Concomitant]
     Active Substance: OXYCODONE HYDROCHLORIDE
     Indication: Pain
     Dosage: 20 MG, 1X/DAY
     Dates: end: 20170831
  6. OXYCODONE HYDROCHLORIDE [Concomitant]
     Active Substance: OXYCODONE HYDROCHLORIDE
     Indication: Mucosal inflammation
     Dosage: 10 MG, 1X/DAY
     Dates: end: 20170901
  7. NICOPATCH [Concomitant]
     Active Substance: NICOTINE
     Indication: Tobacco user
     Dosage: 14 MG, 1X/DAY
     Dates: end: 20170823
  8. ALBUTEROL SULFATE [Concomitant]
     Active Substance: ALBUTEROL SULFATE
     Indication: Acute respiratory failure
     Dates: start: 20170809, end: 20170824
  9. LEVOTHYROXINE SODIUM [Concomitant]
     Active Substance: LEVOTHYROXINE SODIUM
     Indication: Hypothyroidism
     Dosage: 1 DF, 1X/DAY
  10. PIPERACILLIN SODIUM\TAZOBACTAM SODIUM [Concomitant]
     Active Substance: PIPERACILLIN SODIUM\TAZOBACTAM SODIUM
     Indication: Lung disorder
     Dosage: 12 G, 1X/DAY
     Dates: start: 20170804, end: 20170822
  11. PHLOROGLUCINOL\1,3,5-TRIMETHOXYBENZENE [Concomitant]
     Active Substance: PHLOROGLUCINOL\1,3,5-TRIMETHOXYBENZENE
     Indication: Abdominal pain
     Dates: end: 20170823
  12. ATROVENT [Concomitant]
     Active Substance: IPRATROPIUM BROMIDE
     Indication: Acute respiratory failure
     Dates: start: 20170809, end: 20170824
  13. OXYGEN [Concomitant]
     Active Substance: OXYGEN
     Indication: Acute respiratory failure
     Dates: start: 20170804, end: 20170823
  14. FOLIC ACID [Concomitant]
     Active Substance: FOLIC ACID
     Indication: Folate deficiency
     Dosage: 1 DF, 1X/DAY
     Dates: end: 201709
  15. NEXIUM [Concomitant]
     Active Substance: ESOMEPRAZOLE MAGNESIUM
     Indication: Gastrooesophageal reflux disease
     Dosage: 1 DF, 1X/DAY
     Dates: start: 20170809, end: 20170910
  16. VALACYCLOVIR HYDROCHLORIDE [Concomitant]
     Active Substance: VALACYCLOVIR HYDROCHLORIDE
     Indication: Infection prophylaxis
     Dosage: 1 DF, 1X/DAY
     Dates: end: 20170910
  17. POTASSIUM CHLORIDE [Concomitant]
     Active Substance: POTASSIUM CHLORIDE
     Indication: Hypokalaemia
     Dates: end: 20170904
  18. CHLORHEXIDINE GLUCONATE [Concomitant]
     Active Substance: CHLORHEXIDINE GLUCONATE
  19. VERAPAMIL [Concomitant]
     Active Substance: VERAPAMIL HYDROCHLORIDE
     Indication: Arrhythmia
     Dates: start: 20170808, end: 20170910

REACTIONS (5)
  - Toxic skin eruption [Recovered/Resolved]
  - Bacterial sepsis [Recovered/Resolved]
  - Rash [Recovered/Resolved]
  - Abscess [Recovered/Resolved]
  - Inflammation [Recovered/Resolved]

NARRATIVE: CASE EVENT DATE: 20170812
